FAERS Safety Report 22220708 (Version 1)
Quarter: 2023Q2

REPORT INFORMATION
  Report Type: Report from Study
  Country: JP (occurrence: JP)
  Receive Date: 20230418
  Receipt Date: 20230418
  Transmission Date: 20230722
  Serious: Yes (Death, Other)
  Sender: FDA-Public Use
  Company Number: JP-CELLTRION INC.-2021JP003451

PATIENT

DRUGS (39)
  1. INVESTIGATIONAL BIOSIMILARS [Suspect]
     Active Substance: INVESTIGATIONAL BIOSIMILARS
     Indication: HER2 positive gastric cancer
     Dosage: 400 MG, QD
     Route: 041
     Dates: start: 20200521, end: 20200521
  2. INVESTIGATIONAL BIOSIMILARS [Suspect]
     Active Substance: INVESTIGATIONAL BIOSIMILARS
     Dosage: 300 MG, QD
     Route: 041
     Dates: start: 20200611, end: 20200611
  3. INVESTIGATIONAL BIOSIMILARS [Suspect]
     Active Substance: INVESTIGATIONAL BIOSIMILARS
     Dosage: 300 MG, QD
     Route: 041
     Dates: start: 20200702, end: 20200702
  4. INVESTIGATIONAL BIOSIMILARS [Suspect]
     Active Substance: INVESTIGATIONAL BIOSIMILARS
     Dosage: 300 MG, QD
     Route: 041
     Dates: start: 20200730, end: 20200730
  5. INVESTIGATIONAL BIOSIMILARS [Suspect]
     Active Substance: INVESTIGATIONAL BIOSIMILARS
     Dosage: 300 MG, QD
     Route: 041
     Dates: start: 20200903, end: 20200903
  6. INVESTIGATIONAL BIOSIMILARS [Suspect]
     Active Substance: INVESTIGATIONAL BIOSIMILARS
     Dosage: 300 MG, QD
     Route: 041
     Dates: start: 20200903, end: 20200903
  7. INVESTIGATIONAL BIOSIMILARS [Suspect]
     Active Substance: INVESTIGATIONAL BIOSIMILARS
     Dosage: 300 MG, QD
     Route: 041
     Dates: start: 20200924, end: 20200924
  8. INVESTIGATIONAL BIOSIMILARS [Suspect]
     Active Substance: INVESTIGATIONAL BIOSIMILARS
     Dosage: 300 MG, QD
     Route: 041
     Dates: start: 20201015, end: 20201015
  9. INVESTIGATIONAL BIOSIMILARS [Suspect]
     Active Substance: INVESTIGATIONAL BIOSIMILARS
     Dosage: 300 MG, QD
     Route: 041
     Dates: start: 20201105, end: 20201105
  10. INVESTIGATIONAL BIOSIMILARS [Suspect]
     Active Substance: INVESTIGATIONAL BIOSIMILARS
     Dosage: 300 MG, QD
     Route: 041
     Dates: start: 20201125, end: 20201125
  11. INVESTIGATIONAL BIOSIMILARS [Suspect]
     Active Substance: INVESTIGATIONAL BIOSIMILARS
     Dosage: 300 MG, QD
     Route: 041
     Dates: start: 20201217, end: 20201217
  12. INVESTIGATIONAL BIOSIMILARS [Suspect]
     Active Substance: INVESTIGATIONAL BIOSIMILARS
     Dosage: 300 MG, QD
     Route: 041
     Dates: start: 20210114, end: 20210114
  13. INVESTIGATIONAL BIOSIMILARS [Suspect]
     Active Substance: INVESTIGATIONAL BIOSIMILARS
     Dosage: 300 MG, QD
     Route: 041
     Dates: start: 20210203, end: 20210203
  14. INVESTIGATIONAL BIOSIMILARS [Suspect]
     Active Substance: INVESTIGATIONAL BIOSIMILARS
     Dosage: 300 MG, QD
     Route: 041
     Dates: start: 20210225, end: 20210225
  15. INVESTIGATIONAL BIOSIMILARS [Suspect]
     Active Substance: INVESTIGATIONAL BIOSIMILARS
     Dosage: 300 MG, QD
     Route: 041
     Dates: start: 20210325, end: 20210325
  16. INVESTIGATIONAL BIOSIMILARS [Suspect]
     Active Substance: INVESTIGATIONAL BIOSIMILARS
     Dosage: 300 MG, QD
     Route: 041
     Dates: start: 20210428, end: 20210428
  17. INVESTIGATIONAL BIOSIMILARS [Suspect]
     Active Substance: INVESTIGATIONAL BIOSIMILARS
     Dosage: 300 MG, QD
     Route: 041
     Dates: start: 20210520, end: 20210520
  18. INVESTIGATIONAL BIOSIMILARS [Suspect]
     Active Substance: INVESTIGATIONAL BIOSIMILARS
     Dosage: 300 MG, QD
     Route: 041
     Dates: start: 20210617, end: 20210617
  19. GIMERACIL\OTERACIL\TEGAFUR [Suspect]
     Active Substance: GIMERACIL\OTERACIL\OTERACIL POTASSIUM\TEGAFUR
     Indication: HER2 positive gastric cancer
     Dosage: 120 MG, QD
     Route: 048
     Dates: start: 20200521, end: 20200604
  20. GIMERACIL\OTERACIL\TEGAFUR [Suspect]
     Active Substance: GIMERACIL\OTERACIL\OTERACIL POTASSIUM\TEGAFUR
     Dosage: 120 MG, QD
     Route: 048
     Dates: start: 20200611, end: 20200625
  21. GIMERACIL\OTERACIL\TEGAFUR [Suspect]
     Active Substance: GIMERACIL\OTERACIL\OTERACIL POTASSIUM\TEGAFUR
     Dosage: 120 MG, QD
     Route: 048
     Dates: start: 20200702, end: 20200716
  22. GIMERACIL\OTERACIL\TEGAFUR [Suspect]
     Active Substance: GIMERACIL\OTERACIL\OTERACIL POTASSIUM\TEGAFUR
     Dosage: 100 MG, QD
     Route: 048
     Dates: start: 20200730, end: 20200813
  23. GIMERACIL\OTERACIL\TEGAFUR [Suspect]
     Active Substance: GIMERACIL\OTERACIL\OTERACIL POTASSIUM\TEGAFUR
     Dosage: 80 MG, QD
     Route: 048
     Dates: start: 20200903, end: 20200917
  24. GIMERACIL\OTERACIL\TEGAFUR [Suspect]
     Active Substance: GIMERACIL\OTERACIL\OTERACIL POTASSIUM\TEGAFUR
     Dosage: 80 MG, QD
     Route: 048
     Dates: start: 20200903, end: 20200917
  25. GIMERACIL\OTERACIL\TEGAFUR [Suspect]
     Active Substance: GIMERACIL\OTERACIL\OTERACIL POTASSIUM\TEGAFUR
     Dosage: 80 MG, QD
     Route: 048
     Dates: start: 20200924, end: 20201008
  26. GIMERACIL\OTERACIL\TEGAFUR [Suspect]
     Active Substance: GIMERACIL\OTERACIL\OTERACIL POTASSIUM\TEGAFUR
     Dosage: 80 MG, QD
     Route: 048
     Dates: start: 20201015, end: 20201029
  27. GIMERACIL\OTERACIL\TEGAFUR [Suspect]
     Active Substance: GIMERACIL\OTERACIL\OTERACIL POTASSIUM\TEGAFUR
     Dosage: 80 MG, QD
     Route: 048
     Dates: start: 20201105, end: 20201119
  28. GIMERACIL\OTERACIL\TEGAFUR [Suspect]
     Active Substance: GIMERACIL\OTERACIL\OTERACIL POTASSIUM\TEGAFUR
     Dosage: 80 MG, QD
     Route: 048
     Dates: start: 20201125, end: 20201209
  29. GIMERACIL\OTERACIL\TEGAFUR [Suspect]
     Active Substance: GIMERACIL\OTERACIL\OTERACIL POTASSIUM\TEGAFUR
     Dosage: 80 MG, QD
     Route: 048
     Dates: start: 20201217, end: 20201231
  30. GIMERACIL\OTERACIL\TEGAFUR [Suspect]
     Active Substance: GIMERACIL\OTERACIL\OTERACIL POTASSIUM\TEGAFUR
     Dosage: 80 MG, QD
     Route: 048
     Dates: start: 20210114, end: 20210128
  31. GIMERACIL\OTERACIL\TEGAFUR [Suspect]
     Active Substance: GIMERACIL\OTERACIL\OTERACIL POTASSIUM\TEGAFUR
     Dosage: 80 MG, QD
     Route: 048
     Dates: start: 20210203, end: 20210217
  32. GIMERACIL\OTERACIL\TEGAFUR [Suspect]
     Active Substance: GIMERACIL\OTERACIL\OTERACIL POTASSIUM\TEGAFUR
     Dosage: 80 MG, QD
     Route: 048
     Dates: start: 20210225, end: 20210311
  33. GIMERACIL\OTERACIL\TEGAFUR [Suspect]
     Active Substance: GIMERACIL\OTERACIL\OTERACIL POTASSIUM\TEGAFUR
     Dosage: 80 MG, QD
     Route: 048
     Dates: start: 20210325, end: 20210408
  34. GIMERACIL\OTERACIL\TEGAFUR [Suspect]
     Active Substance: GIMERACIL\OTERACIL\OTERACIL POTASSIUM\TEGAFUR
     Dosage: 80 MG, QD
     Route: 048
     Dates: start: 20210428, end: 20210512
  35. GIMERACIL\OTERACIL\TEGAFUR [Suspect]
     Active Substance: GIMERACIL\OTERACIL\OTERACIL POTASSIUM\TEGAFUR
     Dosage: 80 MG, QD
     Route: 048
     Dates: start: 20210520, end: 20210603
  36. GIMERACIL\OTERACIL\TEGAFUR [Suspect]
     Active Substance: GIMERACIL\OTERACIL\OTERACIL POTASSIUM\TEGAFUR
     Dosage: 80 MG, QD
     Route: 048
     Dates: start: 20210617, end: 20210623
  37. CISPLATIN [Concomitant]
     Active Substance: CISPLATIN
     Dosage: UNK
     Dates: start: 20200521, end: 20201015
  38. MAGNESIUM OXIDE [Concomitant]
     Active Substance: MAGNESIUM OXIDE
     Indication: Constipation
     Dosage: UNK, FROM UNKNOWN DATE TO 10 JUN 2020
     Dates: end: 20200610
  39. NEXIUM [Concomitant]
     Active Substance: ESOMEPRAZOLE MAGNESIUM
     Indication: HER2 positive gastric cancer
     Dosage: UNK

REACTIONS (5)
  - HER2 positive gastric cancer [Fatal]
  - Malaise [Recovered/Resolved]
  - Vomiting [Recovering/Resolving]
  - Underdose [Unknown]
  - Off label use [Unknown]

NARRATIVE: CASE EVENT DATE: 20200702
